FAERS Safety Report 6106716-3 (Version None)
Quarter: 2009Q1

REPORT INFORMATION
  Report Type: 
  Country: None (occurrence: None)
  Receive Date: 20090305
  Receipt Date: 20090218
  Transmission Date: 20090719
  Serious: Yes (Hospitalization)
  Sender: FDA-Public Use
  Company Number: 2009000469

PATIENT

DRUGS (1)
  1. TARCEVA [Suspect]
     Dosage: 150 MG, ORAL
     Route: 048

REACTIONS (1)
  - ADVERSE EVENT [None]
